FAERS Safety Report 7639331-0 (Version None)
Quarter: 2011Q3

REPORT INFORMATION
  Report Type: 
  Country: None (occurrence: None)
  Receive Date: 20110727
  Receipt Date: 20110722
  Transmission Date: 20111222
  Serious: Yes (Death, Other)
  Sender: FDA-Public Use
  Company Number: PHHY2011SG66590

PATIENT
  Age: 61 Year
  Sex: Male

DRUGS (3)
  1. BEVACIZUMAB [Suspect]
     Indication: HEPATIC NEOPLASM MALIGNANT
     Dosage: 5 MG/KG, UNK
  2. OXALIPLATIN [Suspect]
     Indication: HEPATIC NEOPLASM MALIGNANT
     Dosage: 65 MG/M2, UNK
  3. DOXORUBICIN HYDROCHLORIDE [Suspect]
     Indication: HEPATIC NEOPLASM MALIGNANT
     Dosage: 20 MG/M2, UNK

REACTIONS (8)
  - NEUTROPENIA [None]
  - THROMBOCYTOPENIA [None]
  - CONSTIPATION [None]
  - MUCOSAL INFLAMMATION [None]
  - LIVER TRANSPLANT REJECTION [None]
  - HEPATIC CIRRHOSIS [None]
  - HAEMORRHOIDAL HAEMORRHAGE [None]
  - HAEMATOCHEZIA [None]
